FAERS Safety Report 17363442 (Version 2)
Quarter: 2020Q1

REPORT INFORMATION
  Report Type: Report from Study
  Country: US (occurrence: US)
  Receive Date: 20200203
  Receipt Date: 20200313
  Transmission Date: 20200409
  Serious: Yes (Hospitalization)
  Sender: FDA-Public Use
  Company Number: US-GILEAD-2020-0449447

PATIENT
  Age: 15 Year
  Sex: Female

DRUGS (20)
  1. AMITRIPTYLINE [Concomitant]
     Active Substance: AMITRIPTYLINE
  2. IPRATROPIUM [Concomitant]
     Active Substance: IPRATROPIUM
  3. TRIKAFTA [Concomitant]
     Active Substance: ELEXACAFTOR\IVACAFTOR\TEZACAFTOR
  4. AZTREONAM LYSINE [Suspect]
     Active Substance: AZTREONAM LYSINE
     Indication: CYSTIC FIBROSIS
     Dosage: 75 MG, TID FOR 28 DAYS, EVERY OTHER MONTH
     Route: 055
     Dates: start: 20130518
  5. SMZ-TMP [Concomitant]
     Active Substance: SULFAMETHOXAZOLE\TRIMETHOPRIM
  6. SULFATRIM [SULFADIAZINE;TRIMETHOPRIM] [Concomitant]
     Active Substance: SULFADIAZINE\TRIMETHOPRIM
  7. ORKAMBI [Concomitant]
     Active Substance: IVACAFTOR\LUMACAFTOR
  8. PULMOZYME [Concomitant]
     Active Substance: DORNASE ALFA
  9. TOBRAMYCIN. [Concomitant]
     Active Substance: TOBRAMYCIN
  10. TRIAMCINOLON [TRIAMCINOLONE] [Concomitant]
  11. BUDESONIDE. [Concomitant]
     Active Substance: BUDESONIDE
  12. CYPROHEPTADINE. [Concomitant]
     Active Substance: CYPROHEPTADINE
  13. FERROUS SULFATE. [Concomitant]
     Active Substance: FERROUS SULFATE
  14. MIRALAX [Concomitant]
     Active Substance: POLYETHYLENE GLYCOL 3350
  15. AQUADEKS [Concomitant]
     Active Substance: MINERALS\VITAMINS
  16. CREON [Concomitant]
     Active Substance: PANCRELIPASE AMYLASE\PANCRELIPASE LIPASE\PANCRELIPASE PROTEASE
  17. POLY VITAMIN [Concomitant]
  18. TOBI [Concomitant]
     Active Substance: TOBRAMYCIN
  19. ALBUTEROL [SALBUTAMOL] [Concomitant]
     Active Substance: ALBUTEROL
  20. MOMETASONE [Concomitant]
     Active Substance: MOMETASONE

REACTIONS (1)
  - Infection [Unknown]

NARRATIVE: CASE EVENT DATE: 202001
